FAERS Safety Report 21859379 (Version 2)
Quarter: 2023Q1

REPORT INFORMATION
  Report Type: Report from Study
  Country: US (occurrence: US)
  Receive Date: 20230113
  Receipt Date: 20230224
  Transmission Date: 20230417
  Serious: Yes (Other)
  Sender: FDA-Public Use
  Company Number: US-ABBVIE-4237790

PATIENT
  Sex: Female

DRUGS (1)
  1. HUMIRA [Suspect]
     Active Substance: ADALIMUMAB
     Indication: Rheumatoid arthritis
     Dosage: CITRATE FREE
     Route: 058

REACTIONS (7)
  - Cataract [Not Recovered/Not Resolved]
  - Injection site erythema [Unknown]
  - Injection site papule [Unknown]
  - Injection site pruritus [Unknown]
  - Rash papular [Unknown]
  - Rash pruritic [Unknown]
  - Eczema [Unknown]
